FAERS Safety Report 9836001 (Version 2)
Quarter: 2014Q1

REPORT INFORMATION
  Report Type: Report from Study
  Country: TH (occurrence: TH)
  Receive Date: 20140122
  Receipt Date: 20140127
  Transmission Date: 20141002
  Serious: Yes (Death, Hospitalization, Other)
  Sender: FDA-Public Use
  Company Number: PHHY2014TH006911

PATIENT
  Sex: Female

DRUGS (1)
  1. GLIVEC [Suspect]
     Indication: GASTROINTESTINAL STROMAL TUMOUR
     Dosage: 400 MG, UNK
     Route: 048

REACTIONS (7)
  - Sepsis [Fatal]
  - Gastric perforation [Fatal]
  - Wheezing [Unknown]
  - Somnolence [Unknown]
  - Tumour necrosis [Unknown]
  - Aphagia [Unknown]
  - Inflammation [Unknown]
